FAERS Safety Report 5773413-3 (Version None)
Quarter: 2008Q2

REPORT INFORMATION
  Report Type: 
  Country: None (occurrence: None)
  Receive Date: 20080601
  Receipt Date: 20080313
  Transmission Date: 20081010
  Serious: No
  Sender: FDA-Public Use
  Company Number: US200803003058

PATIENT
  Age: 45 Year
  Sex: Female
  Weight: 75.8 kg

DRUGS (2)
  1. BYETTA [Suspect]
     Indication: HYPOTHYROIDISM
     Dosage: 5 UG, 2/D, SUBCUTANEOUS; 10 UG, 2/D, SUBCUTANEOUS
     Route: 058
     Dates: start: 20080211, end: 20080311
  2. BYETTA [Suspect]
     Indication: HYPOTHYROIDISM
     Dosage: 5 UG, 2/D, SUBCUTANEOUS; 10 UG, 2/D, SUBCUTANEOUS
     Route: 058
     Dates: start: 20080312

REACTIONS (3)
  - DECREASED APPETITE [None]
  - INJECTION SITE IRRITATION [None]
  - THYROID PAIN [None]
